FAERS Safety Report 11118697 (Version 2)
Quarter: 2015Q2

REPORT INFORMATION
  Report Type: Spontaneous
  Country: CH (occurrence: CH)
  Receive Date: 20150518
  Receipt Date: 20150526
  Transmission Date: 20150821
  Serious: Yes (Death, Other)
  Sender: FDA-Public Use
  Company Number: CH-TEVA-562664ISR

PATIENT
  Age: 59 Year
  Sex: Male

DRUGS (1)
  1. CISPLATIN TEVA [Suspect]
     Active Substance: CISPLATIN
     Indication: OROPHARYNGEAL CANCER
     Dosage: 75 MILLIGRAM DAILY; INFUSION TIME WAS 1 HOUR.
     Route: 041
     Dates: start: 20150417

REACTIONS (6)
  - Mydriasis [Not Recovered/Not Resolved]
  - Cyanosis [Not Recovered/Not Resolved]
  - Pulseless electrical activity [Not Recovered/Not Resolved]
  - Death [Fatal]
  - Brain injury [Not Recovered/Not Resolved]
  - Loss of consciousness [Not Recovered/Not Resolved]

NARRATIVE: CASE EVENT DATE: 20150417
